FAERS Safety Report 26200663 (Version 1)
Quarter: 2025Q4

REPORT INFORMATION
  Report Type: Spontaneous
  Country: US (occurrence: US)
  Receive Date: 20251225
  Receipt Date: 20251225
  Transmission Date: 20260118
  Serious: No
  Sender: ABBVIE
  Company Number: US-ABBVIE-6606248

PATIENT
  Sex: Female

DRUGS (2)
  1. REFRESH RELIEVA PF XTRA [Suspect]
     Active Substance: CARBOXYMETHYLCELLULOSE SODIUM\GLYCERIN
     Indication: Product used for unknown indication
     Route: 047
  2. REFRESH PLUS [Suspect]
     Active Substance: CARBOXYMETHYLCELLULOSE SODIUM
     Indication: Product used for unknown indication
     Dosage: DEVICE, DRUG, OTC DRUG
     Route: 047

REACTIONS (4)
  - Wrong technique in product usage process [Not Recovered/Not Resolved]
  - Upper limb fracture [Unknown]
  - Product container issue [Not Recovered/Not Resolved]
  - Pain in extremity [Unknown]
